FAERS Safety Report 8126011-0 (Version None)
Quarter: 2012Q1

REPORT INFORMATION
  Report Type: 
  Country: None (occurrence: None)
  Receive Date: 20120209
  Receipt Date: 20120125
  Transmission Date: 20120608
  Serious: Yes (Hospitalization)
  Sender: FDA-Public Use
  Company Number: NL-ROCHE-1036983

PATIENT
  Sex: Female
  Weight: 80 kg

DRUGS (8)
  1. PRAVASTATIN [Concomitant]
  2. RANIBIZUMAB [Suspect]
     Indication: DIABETIC RETINAL OEDEMA
     Route: 050
     Dates: start: 20110127, end: 20110127
  3. PLAVIX [Concomitant]
  4. RANIBIZUMAB [Suspect]
     Route: 050
     Dates: start: 20111117, end: 20111117
  5. LUMIGAN [Concomitant]
  6. MOVICOLON [Concomitant]
  7. TIOTROPIUM [Concomitant]
  8. METOCLOPRAMIDE [Concomitant]

REACTIONS (1)
  - TRANSIENT ISCHAEMIC ATTACK [None]
